FAERS Safety Report 15860600 (Version 4)
Quarter: 2024Q2

REPORT INFORMATION
  Report Type: Spontaneous
  Country: PL (occurrence: PL)
  Receive Date: 20190123
  Receipt Date: 20240417
  Transmission Date: 20240715
  Serious: Yes (Death, Life-Threatening, Hospitalization, Other)
  Sender: FDA-Public Use
  Company Number: None

PATIENT
  Age: 31 Year
  Sex: Male

DRUGS (16)
  1. TACROLIMUS [Suspect]
     Active Substance: TACROLIMUS
     Indication: Immunosuppressant drug therapy
     Dosage: UNK, DOSE INCREASED
     Route: 065
     Dates: start: 2014
  2. TACROLIMUS [Suspect]
     Active Substance: TACROLIMUS
     Indication: Liver transplant
     Dosage: UNK
     Route: 065
     Dates: start: 201411
  3. TACROLIMUS [Suspect]
     Active Substance: TACROLIMUS
     Dosage: UNK, PLASMA CONCERTATION WAS TARGETED TO BE APPROXIMATELY 5 NG/ML
     Route: 065
     Dates: start: 2015, end: 2015
  4. MYCOPHENOLATE MOFETIL [Suspect]
     Active Substance: MYCOPHENOLATE MOFETIL
     Indication: Immunosuppressant drug therapy
     Dosage: UNK, DOSE INCREASED
     Route: 065
     Dates: start: 2014
  5. MYCOPHENOLATE MOFETIL [Suspect]
     Active Substance: MYCOPHENOLATE MOFETIL
     Indication: Liver transplant
     Dosage: UNK
     Route: 065
     Dates: start: 201411
  6. MYCOPHENOLATE MOFETIL [Suspect]
     Active Substance: MYCOPHENOLATE MOFETIL
     Dosage: 3 GRAM, QD (3 G PER DAY)
     Route: 065
     Dates: start: 2015, end: 2015
  7. PREDNISOLONE [Suspect]
     Active Substance: PREDNISOLONE
     Indication: Immunosuppressant drug therapy
     Dosage: UNK, DOSE INCREASED
     Route: 065
     Dates: start: 2014
  8. PREDNISOLONE [Suspect]
     Active Substance: PREDNISOLONE
     Indication: Liver transplant
     Dosage: 30 MILLIGRAM
     Route: 065
     Dates: start: 201411, end: 20150101
  9. PREDNISOLONE [Suspect]
     Active Substance: PREDNISOLONE
     Dosage: UNK
     Route: 065
     Dates: start: 201411
  10. THYMOCYTE IMMUNE GLOBULIN NOS [Suspect]
     Active Substance: THYMOCYTE IMMUNE GLOBULIN NOS
     Indication: Immunosuppressant drug therapy
     Dosage: 800 MILLIGRAM, TOTAL
     Route: 065
     Dates: start: 201411, end: 2014
  11. BORTEZOMIB [Suspect]
     Active Substance: BORTEZOMIB
     Indication: Transplant rejection
     Dosage: 1.25 MILLIGRAM/SQ. METER (4 X 2 MG 1.25 MG/M^2 OF BODY SURFACE)
     Route: 042
     Dates: start: 2014
  12. METHYLPREDNISOLONE [Suspect]
     Active Substance: METHYLPREDNISOLONE
     Indication: Immunosuppressant drug therapy
     Dosage: UNK
     Route: 042
     Dates: start: 201411
  13. METHYLPREDNISOLONE [Suspect]
     Active Substance: METHYLPREDNISOLONE
     Dosage: 2750 MILLIGRAM, TOTAL (INFUSION)
     Route: 042
     Dates: start: 201411
  14. METHYLPREDNISOLONE [Suspect]
     Active Substance: METHYLPREDNISOLONE
     Dosage: 120 MILLIGRAM
     Route: 042
     Dates: start: 2015, end: 2015
  15. METHYLPREDNISOLONE [Suspect]
     Active Substance: METHYLPREDNISOLONE
     Dosage: 40 MILLIGRAM, QD
     Route: 042
     Dates: start: 2015
  16. MESALAMINE [Concomitant]
     Active Substance: MESALAMINE
     Indication: Colitis ulcerative
     Dosage: UNK
     Route: 065
     Dates: end: 2015

REACTIONS (13)
  - Respiratory distress [Fatal]
  - Influenza like illness [Unknown]
  - Hypogammaglobulinaemia [Unknown]
  - Pulmonary fibrosis [Not Recovered/Not Resolved]
  - Liver transplant rejection [Recovered/Resolved]
  - Tachypnoea [Unknown]
  - Pancytopenia [Unknown]
  - Interstitial lung disease [Unknown]
  - Dyspnoea at rest [Unknown]
  - Pneumocystis jirovecii infection [Unknown]
  - Superinfection bacterial [Unknown]
  - Cytomegalovirus infection [Recovered/Resolved]
  - Upper respiratory tract infection [Unknown]

NARRATIVE: CASE EVENT DATE: 20141201
